FAERS Safety Report 8445238-1 (Version None)
Quarter: 2012Q2

REPORT INFORMATION
  Report Type: 
  Country: None (occurrence: None)
  Receive Date: 20120618
  Receipt Date: 20120607
  Transmission Date: 20120825
  Serious: Yes (Other)
  Sender: FDA-Public Use
  Company Number: US-MUTUAL PHARMACEUTICAL COMPANY, INC.-BCTM20120027

PATIENT
  Sex: Male

DRUGS (9)
  1. EFAVIRENZ [Suspect]
     Indication: HIV INFECTION
     Route: 048
     Dates: start: 20120507
  2. LOPERAMIDE [Concomitant]
     Indication: DIARRHOEA
     Route: 065
     Dates: start: 20120510
  3. BACTRIM [Suspect]
     Indication: ANTIBIOTIC PROPHYLAXIS
     Route: 048
  4. ISONIAZID [Suspect]
     Indication: PRODUCT USED FOR UNKNOWN INDICATION
     Route: 048
     Dates: start: 20120507
  5. VITAMIN B6 [Concomitant]
     Indication: PRODUCT USED FOR UNKNOWN INDICATION
     Route: 065
  6. NYSTATIN ORAL SUSPENSION [Concomitant]
     Indication: ORAL CANDIDIASIS
     Route: 048
     Dates: start: 20120514
  7. TRUVADA [Suspect]
     Indication: HIV INFECTION
     Route: 048
     Dates: start: 20120507
  8. IBUPROFEN [Concomitant]
     Indication: PRODUCT USED FOR UNKNOWN INDICATION
     Route: 048
     Dates: start: 20120514
  9. FLAGYL [Concomitant]
     Indication: DIARRHOEA
     Route: 048
     Dates: start: 20120512, end: 20120501

REACTIONS (1)
  - ANAEMIA [None]
